FAERS Safety Report 7174751-2 (Version None)
Quarter: 2010Q4

REPORT INFORMATION
  Report Type: 
  Country: None (occurrence: None)
  Receive Date: 20101215
  Receipt Date: 20101215
  Transmission Date: 20110411
  Serious: Yes (Life-Threatening, Hospitalization)
  Sender: FDA-Public Use
  Company Number: None

PATIENT
  Age: 44 Year
  Sex: Female
  Weight: 89.3586 kg

DRUGS (2)
  1. PROPOXYPHENE HCL AND ACETAMINOPHEN [Suspect]
     Indication: MUSCLE STRAIN
     Dosage: 100 - 650 EVERY 4 HRS AS NEEDED
     Dates: start: 20101022
  2. PROPOXYPHENE HCL AND ACETAMINOPHEN [Suspect]
     Indication: MUSCLE STRAIN
     Dosage: 100 - 650 EVERY 4 HRS AS NEEDED
     Dates: start: 20101101

REACTIONS (1)
  - CHEST PAIN [None]
